FAERS Safety Report 7031532-8 (Version None)
Quarter: 2010Q4

REPORT INFORMATION
  Report Type: 
  Country: None (occurrence: None)
  Receive Date: 20101006
  Receipt Date: 20101006
  Transmission Date: 20110411
  Serious: Yes (Life-Threatening, Other)
  Sender: FDA-Public Use
  Company Number: None

PATIENT
  Age: 47 Year
  Sex: Male
  Weight: 99.7913 kg

DRUGS (2)
  1. TALWIN [Suspect]
     Indication: MULTIPLE SCLEROSIS
     Dosage: ONE 2 TIMES A DAY PO
     Route: 048
     Dates: start: 20091215, end: 20100126
  2. PREDNISONE [Concomitant]

REACTIONS (2)
  - STEVENS-JOHNSON SYNDROME [None]
  - THROAT CANCER [None]
